FAERS Safety Report 8560435-2 (Version None)
Quarter: 2012Q3

REPORT INFORMATION
  Report Type: 
  Country: None (occurrence: None)
  Receive Date: 20120802
  Receipt Date: 20120719
  Transmission Date: 20120928
  Serious: No
  Sender: FDA-Public Use
  Company Number: US-009507513-1207USA008278

PATIENT

DRUGS (3)
  1. JANUMET [Suspect]
     Indication: TYPE 2 DIABETES MELLITUS
     Dosage: UNK
     Route: 048
     Dates: start: 20120628
  2. TRAMADOL HYDROCHLORIDE [Concomitant]
  3. LIPITOR [Concomitant]

REACTIONS (1)
  - CONSTIPATION [None]
